FAERS Safety Report 20222767 (Version 1)
Quarter: 2021Q4

REPORT INFORMATION
  Report Type: Spontaneous
  Country: CN (occurrence: CN)
  Receive Date: 20211223
  Receipt Date: 20211223
  Transmission Date: 20220303
  Serious: Yes (Disabling, Other)
  Sender: FDA-Public Use
  Company Number: CN-PFIZER INC-202101771094

PATIENT
  Age: 73 Year
  Sex: Male
  Weight: 65 kg

DRUGS (11)
  1. PACLITAXEL [Suspect]
     Active Substance: PACLITAXEL
     Indication: Chemotherapy
     Dosage: 210.000 MG, 1X/DAY
     Route: 041
     Dates: start: 20211120, end: 20211120
  2. CISPLATIN [Suspect]
     Active Substance: CISPLATIN
     Indication: Chemotherapy
     Dosage: 40.000 MG, 1X/DAY
     Route: 041
     Dates: start: 20211121, end: 20211122
  3. DEXAMETHASONE SODIUM PHOSPHATE [Concomitant]
     Active Substance: DEXAMETHASONE SODIUM PHOSPHATE
     Indication: Therapeutic procedure
     Dosage: 10.000 MG, 1X/DAY
     Route: 042
     Dates: start: 20211120, end: 20211120
  4. SODIUM CHLORIDE [Concomitant]
     Active Substance: SODIUM CHLORIDE
     Indication: Vehicle solution use
     Dosage: 250.000 ML, 1X/DAY
     Route: 041
     Dates: start: 20211121, end: 20211122
  5. PROMETHAZINE HYDROCHLORIDE [Concomitant]
     Active Substance: PROMETHAZINE HYDROCHLORIDE
     Indication: Therapeutic procedure
     Dosage: 25.000 MG, 1X/DAY
     Route: 030
     Dates: start: 20211120, end: 20211120
  6. GRANISETRON HYDROCHLORIDE [Concomitant]
     Active Substance: GRANISETRON HYDROCHLORIDE
     Indication: Therapeutic procedure
     Dosage: 3.000 MG, 1X/DAY
     Route: 042
     Dates: start: 20211020, end: 20211022
  7. DEXTROSE [Concomitant]
     Active Substance: DEXTROSE
     Indication: Vehicle solution use
     Dosage: 100.000 ML, 1X/DAY
     Route: 041
     Dates: start: 20211120, end: 20211120
  8. DEXTROSE [Concomitant]
     Active Substance: DEXTROSE
     Indication: Vehicle solution use
     Dosage: 500.000 ML, 1X/DAY
     Route: 041
     Dates: start: 20211120, end: 20211120
  9. CIMETIDINE [Concomitant]
     Active Substance: CIMETIDINE
     Indication: Therapeutic procedure
     Dosage: 0.400 G, 1X/DAY
     Route: 042
     Dates: start: 20211120, end: 20211120
  10. DEXAMETHASONE ACETATE [Concomitant]
     Active Substance: DEXAMETHASONE ACETATE
     Indication: Therapeutic procedure
     Dosage: 8.000 MG, 2X/DAY
     Route: 048
     Dates: start: 20211119, end: 20211120
  11. ALMAGATE [Concomitant]
     Active Substance: ALMAGATE
     Indication: Therapeutic procedure
     Dosage: 30.000 ML, 2X/DAY
     Route: 048
     Dates: start: 20211119, end: 20211120

REACTIONS (5)
  - Myelosuppression [Recovering/Resolving]
  - Hepatic function abnormal [Recovering/Resolving]
  - Nausea [Recovering/Resolving]
  - Vomiting [Recovering/Resolving]
  - Off label use [Unknown]

NARRATIVE: CASE EVENT DATE: 20211121
